FAERS Safety Report 15753560 (Version 2)
Quarter: 2019Q1

REPORT INFORMATION
  Report Type: Spontaneous
  Country: US (occurrence: US)
  Receive Date: 20181222
  Receipt Date: 20190221
  Transmission Date: 20190417
  Serious: No
  Sender: FDA-Public Use
  Company Number: US-009507513-1812USA005797

PATIENT
  Age: 20 Year
  Sex: Female
  Weight: 87.08 kg

DRUGS (1)
  1. NEXPLANON [Suspect]
     Active Substance: ETONOGESTREL
     Indication: CONTRACEPTION
     Dosage: 68 MG, 1 ROD, LEFT UPPER ARM, INFERIOR TO THE SULCUS BICIPITALLS MEDIALIS
     Route: 059
     Dates: start: 20151026, end: 20181221

REACTIONS (3)
  - Device deployment issue [Recovered/Resolved]
  - Incorrect product administration duration [Unknown]
  - Device breakage [Recovered/Resolved]

NARRATIVE: CASE EVENT DATE: 20151026
